FAERS Safety Report 14902413 (Version 1)
Quarter: 2018Q2

REPORT INFORMATION
  Report Type: Spontaneous
  Country: FR (occurrence: FR)
  Receive Date: 20180515
  Receipt Date: 20180515
  Transmission Date: 20180711
  Serious: Yes (Other)
  Sender: FDA-Public Use
  Company Number: FR-MERCK KGAA-2047732

PATIENT
  Age: 36 Year
  Sex: Female

DRUGS (1)
  1. NOVOTHYROX [Suspect]
     Active Substance: LEVOTHYROXINE SODIUM
     Indication: AUTOIMMUNE HYPOTHYROIDISM
     Dates: start: 201708

REACTIONS (83)
  - Monoplegia [None]
  - Pruritus [None]
  - Carpal tunnel syndrome [None]
  - Arthralgia [None]
  - Costochondritis [None]
  - Cognitive disorder [None]
  - Aphasia [None]
  - Walking disability [None]
  - Blood thyroid stimulating hormone abnormal [None]
  - Hyperthyroidism [None]
  - Localised oedema [None]
  - Platelet count decreased [None]
  - Dizziness [None]
  - Chills [None]
  - Impaired driving ability [None]
  - Hypothyroidism [None]
  - Impaired work ability [None]
  - Anti-thyroid antibody positive [None]
  - Sensory loss [None]
  - Tremor [None]
  - Urticaria [None]
  - Eye disorder [None]
  - Decreased appetite [None]
  - Constipation [None]
  - Disturbance in attention [None]
  - Memory impairment [None]
  - Loss of personal independence in daily activities [None]
  - Dysstasia [None]
  - Muscle fatigue [None]
  - Blood thyroid stimulating hormone decreased [Recovered/Resolved]
  - Decreased interest [None]
  - Drug intolerance [None]
  - Alopecia [None]
  - Eye swelling [None]
  - Visual impairment [None]
  - Blood pressure decreased [None]
  - Flatulence [None]
  - Apathy [Not Recovered/Not Resolved]
  - Emotional distress [None]
  - Migraine [None]
  - Dry skin [None]
  - Thinking abnormal [None]
  - Stress [None]
  - Diarrhoea [None]
  - Hypertensive crisis [None]
  - Hypothermia [None]
  - Coordination abnormal [None]
  - Fatigue [None]
  - Irritability [None]
  - Muscle contracture [None]
  - Decreased activity [None]
  - Suicidal ideation [None]
  - Malaise [None]
  - Hypoacusis [None]
  - Paraesthesia [None]
  - Pain [None]
  - Mobility decreased [None]
  - Abdominal pain upper [None]
  - Insomnia [None]
  - Muscular weakness [None]
  - Intracranial pressure increased [None]
  - Dyspnoea at rest [None]
  - Vulvovaginal dryness [None]
  - Peripheral swelling [None]
  - Abnormal weight gain [None]
  - Tinnitus [None]
  - Hallucination [None]
  - Hypokinesia [None]
  - Somnolence [None]
  - Anorectal discomfort [None]
  - Intellectual disability [None]
  - Neuralgia [None]
  - Tri-iodothyronine free increased [None]
  - Tachyarrhythmia [None]
  - Loss of consciousness [None]
  - Arrhythmia [None]
  - Acne [None]
  - Skin plaque [None]
  - Anxiety [None]
  - Physical disability [None]
  - Accommodation disorder [None]
  - Spinal pain [None]
  - Muscle spasms [None]

NARRATIVE: CASE EVENT DATE: 2017
